FAERS Safety Report 8585838 (Version 2)
Quarter: 2012Q4

REPORT INFORMATION
  Report Type: 
  Country: US (occurrence: US)
  Receive Date: 20120530
  Receipt Date: 20120917
  Transmission Date: 20130627
  Serious: Yes (Hospitalization, Other)
  Sender: FDA-Public Use
  Company Number: US-ASTRAZENECA-2012SE32857

PATIENT
  Age: 50 Year
  Sex: Female

DRUGS (9)
  1. SYMBICORT PMDI [Suspect]
     Route: 055
  2. PROTONIX [Concomitant]
  3. FOLIC ACID [Concomitant]
  4. OXYCODONE [Concomitant]
  5. OXYCODONE [Concomitant]
  6. MORPHINE [Concomitant]
  7. CLONAZEPAM [Concomitant]
  8. PREDNISONE [Concomitant]
  9. LOVENOX [Concomitant]

REACTIONS (13)
  - Pneumonia [Unknown]
  - Lung adenocarcinoma stage IV [Unknown]
  - Superior vena cava syndrome [Unknown]
  - Bronchostenosis [Unknown]
  - Dyspnoea [Unknown]
  - Hypoxia [Unknown]
  - Pulmonary mass [Unknown]
  - Malignant pleural effusion [Unknown]
  - Bronchial disorder [Unknown]
  - Dyslipidaemia [Unknown]
  - Tobacco abuse [Unknown]
  - Chronic obstructive pulmonary disease [Unknown]
  - Hypertension [Unknown]
